FAERS Safety Report 6328098-4 (Version None)
Quarter: 2009Q3

REPORT INFORMATION
  Report Type: 
  Country: None (occurrence: None)
  Receive Date: 20090825
  Receipt Date: 20080827
  Transmission Date: 20100115
  Serious: No
  Sender: FDA-Public Use
  Company Number: US-ABBOTT-08P-163-0472930-00

PATIENT
  Sex: Female
  Weight: 51.756 kg

DRUGS (4)
  1. SYNTHROID [Suspect]
     Indication: THYROIDITIS
     Route: 048
     Dates: start: 19730101
  2. PHENOBARBITAL [Concomitant]
     Indication: EPILEPSY
     Route: 048
     Dates: start: 19780101
  3. PROPRANOLOL [Concomitant]
     Indication: ARRHYTHMIA
     Route: 048
     Dates: start: 19600101
  4. CYANOCOBALAMIN [Concomitant]
     Indication: GASTRIC OPERATION
     Route: 050
     Dates: start: 19880101

REACTIONS (8)
  - CONSTIPATION [None]
  - DRUG INEFFECTIVE [None]
  - FATIGUE [None]
  - LETHARGY [None]
  - PALPITATIONS [None]
  - PARAESTHESIA [None]
  - TRICHORRHEXIS [None]
  - WEIGHT INCREASED [None]
